FAERS Safety Report 12313352 (Version 4)
Quarter: 2016Q2

REPORT INFORMATION
  Report Type: Report from Study
  Country: US (occurrence: US)
  Receive Date: 20160428
  Receipt Date: 20160620
  Transmission Date: 20160815
  Serious: Yes (Hospitalization, Other)
  Sender: FDA-Public Use
  Company Number: US-GILEAD-2016-0210718

PATIENT
  Age: 47 Year
  Sex: Female
  Weight: 71 kg

DRUGS (45)
  1. AMBRISENTAN [Suspect]
     Active Substance: AMBRISENTAN
     Indication: DRUG ABUSER
  2. ORENITRAM [Suspect]
     Active Substance: TREPROSTINIL
     Dosage: 7.5 MG, TID
     Route: 048
  3. ORENITRAM [Suspect]
     Active Substance: TREPROSTINIL
     Dosage: 7.5 MG, CYCLICAL
     Route: 048
  4. METOLAZONE. [Concomitant]
     Active Substance: METOLAZONE
  5. SIMVASTATIN. [Concomitant]
     Active Substance: SIMVASTATIN
  6. XARELTO [Concomitant]
     Active Substance: RIVAROXABAN
  7. AMITRIPTYLINE [Concomitant]
     Active Substance: AMITRIPTYLINE
  8. ASCORBIC ACID. [Concomitant]
     Active Substance: ASCORBIC ACID
  9. CELEBREX [Concomitant]
     Active Substance: CELECOXIB
  10. FERROUS GLUCONATE [Concomitant]
     Active Substance: FERROUS GLUCONATE
  11. LEVOTHYROXINE. [Concomitant]
     Active Substance: LEVOTHYROXINE
  12. STOOL SOFTENER [Concomitant]
     Active Substance: DOCUSATE CALCIUM
  13. TORSEMIDE. [Concomitant]
     Active Substance: TORSEMIDE
  14. CALCIUM [Concomitant]
     Active Substance: CALCIUM
  15. TRAMADOL. [Concomitant]
     Active Substance: TRAMADOL
  16. RANITIDINE. [Concomitant]
     Active Substance: RANITIDINE
  17. ORENITRAM [Suspect]
     Active Substance: TREPROSTINIL
     Dosage: 2.5 MG, UNK
     Route: 048
  18. REVATIO [Concomitant]
     Active Substance: SILDENAFIL CITRATE
  19. DIGOXIN. [Concomitant]
     Active Substance: DIGOXIN
  20. DIPHENHYDRAMINE. [Concomitant]
     Active Substance: DIPHENHYDRAMINE
  21. KLOR-CON M20 [Concomitant]
     Active Substance: POTASSIUM CHLORIDE
  22. OMEPRAZOLE. [Concomitant]
     Active Substance: OMEPRAZOLE
  23. ONDANSETRON HCL [Concomitant]
     Active Substance: ONDANSETRON HYDROCHLORIDE
  24. REQUIP [Concomitant]
     Active Substance: ROPINIROLE HYDROCHLORIDE
  25. SINEMET [Concomitant]
     Active Substance: CARBIDOPA\LEVODOPA
  26. AMBRISENTAN [Suspect]
     Active Substance: AMBRISENTAN
     Indication: PULMONARY HYPERTENSION
     Dosage: 10 MG, QD
     Route: 048
     Dates: start: 20110208
  27. OXYGEN. [Concomitant]
     Active Substance: OXYGEN
  28. PROMETHAZINE [Concomitant]
     Active Substance: PROMETHAZINE\PROMETHAZINE HYDROCHLORIDE
  29. VITAMIN B12 [Concomitant]
     Active Substance: CYANOCOBALAMIN
  30. ALPRAZOLAM. [Concomitant]
     Active Substance: ALPRAZOLAM
  31. ORENITRAM [Suspect]
     Active Substance: TREPROSTINIL
     Dosage: 17.5 MG, QD
     Route: 048
  32. ORENITRAM [Suspect]
     Active Substance: TREPROSTINIL
     Dosage: 5 MG, TID
     Route: 048
     Dates: start: 20160307
  33. MELOXICAM. [Concomitant]
     Active Substance: MELOXICAM
  34. SPIRONOLACTONE. [Concomitant]
     Active Substance: SPIRONOLACTONE
  35. ATIVAN [Concomitant]
     Active Substance: LORAZEPAM
  36. ORENITRAM [Suspect]
     Active Substance: TREPROSTINIL
     Indication: PULMONARY HYPERTENSION
     Dosage: 10 MG, TID
     Route: 048
  37. ORENITRAM [Suspect]
     Active Substance: TREPROSTINIL
     Indication: DRUG ABUSE
     Dosage: 2.5 MG, TID
     Route: 048
  38. BIOTIN [Concomitant]
     Active Substance: BIOTIN
  39. FLUTICASONE [Concomitant]
     Active Substance: FLUTICASONE\FLUTICASONE PROPIONATE
  40. IRON [Concomitant]
     Active Substance: IRON
  41. ACIPHEX [Concomitant]
     Active Substance: RABEPRAZOLE SODIUM
  42. ORENITRAM [Suspect]
     Active Substance: TREPROSTINIL
     Dosage: 5 MG, TID
     Route: 048
  43. MORPHINE HYDROCHLORIDE [Concomitant]
     Active Substance: MORPHINE HYDROCHLORIDE
  44. VITAMIN B COMPLEX [Concomitant]
     Active Substance: CYANOCOBALAMIN\DEXPANTHENOL\NIACINAMIDE\PYRIDOXINE HYDROCHLORIDE\RIBOFLAVIN 5^-PHOSPHATE SODIUM\THIAMINE HYDROCHLORIDE\VITAMIN B COMPLEX
  45. INVANZ [Concomitant]
     Active Substance: ERTAPENEM SODIUM

REACTIONS (4)
  - Rash [Unknown]
  - Incontinence [Unknown]
  - Bladder disorder [Unknown]
  - Bladder operation [Recovered/Resolved]

NARRATIVE: CASE EVENT DATE: 20160421
